FAERS Safety Report 11841312 (Version 3)
Quarter: 2019Q3

REPORT INFORMATION
  Report Type: Spontaneous
  Country: US (occurrence: US)
  Receive Date: 20151216
  Receipt Date: 20190830
  Transmission Date: 20191004
  Serious: Yes (Hospitalization, Other)
  Sender: FDA-Public Use
  Company Number: US-PFIZER INC-2015439461

PATIENT
  Age: 60 Year
  Sex: Male
  Weight: 81.19 kg

DRUGS (12)
  1. METFORMIN [Concomitant]
     Active Substance: METFORMIN HYDROCHLORIDE
     Indication: DIABETES MELLITUS
     Dosage: 2500 MG, DAILY (TAKES 2 IN THE MORNING, AND 3 IN AFTERNOON)
  2. VERAPAMIL [Concomitant]
     Active Substance: VERAPAMIL HYDROCHLORIDE
     Indication: HYPERTENSION
     Dosage: 240 MG, UNK
  3. TRAZODONE [Concomitant]
     Active Substance: TRAZODONE HYDROCHLORIDE
     Indication: SLEEP DISORDER
     Dosage: 200 MG, AT BEDTIME
  4. NEXIUM [Concomitant]
     Active Substance: ESOMEPRAZOLE MAGNESIUM
     Indication: DYSPEPSIA
     Dosage: 80 MG, DAILY
  5. VIAGRA [Suspect]
     Active Substance: SILDENAFIL CITRATE
     Dosage: 100 MG, TABLET, ONCE EVERY 3 DAYS
     Dates: start: 2014, end: 201505
  6. VITAMIN D [Concomitant]
     Active Substance: VITAMIN D NOS
     Dosage: 5000 MG, UNK
  7. VITAMIN D [Concomitant]
     Active Substance: VITAMIN D NOS
     Dosage: 1000 MG, UNK
  8. VIAGRA [Suspect]
     Active Substance: SILDENAFIL CITRATE
     Indication: ERECTILE DYSFUNCTION
     Dosage: 50 MG, UNK
  9. HYDROCODONE [Concomitant]
     Active Substance: HYDROCODONE
     Indication: BACK PAIN
     Dosage: 10.325 MG, UNK
     Dates: start: 2008
  10. XANAX [Concomitant]
     Active Substance: ALPRAZOLAM
     Indication: SLEEP DISORDER
     Dosage: 4 MG, AT BEDTIME
  11. ASPIRIN. [Concomitant]
     Active Substance: ASPIRIN
     Indication: CARDIAC MURMUR
     Dosage: 81 MG, 1X/DAY
  12. LISINOPRIL. [Concomitant]
     Active Substance: LISINOPRIL
     Indication: HYPERTENSION
     Dosage: 20 MG, DAILY

REACTIONS (4)
  - Testicular swelling [Recovered/Resolved with Sequelae]
  - Testicular pain [Unknown]
  - Therapeutic product effect incomplete [Recovered/Resolved]
  - Orchitis [Recovered/Resolved]

NARRATIVE: CASE EVENT DATE: 2014
